FAERS Safety Report 18950646 (Version 1)
Quarter: 2021Q1

REPORT INFORMATION
  Report Type: Spontaneous
  Country: US (occurrence: US)
  Receive Date: 20210228
  Receipt Date: 20210228
  Transmission Date: 20210420
  Serious: No
  Sender: FDA-Public Use
  Company Number: US-ROCHE-2684310

PATIENT
  Sex: Female
  Weight: 79.45 kg

DRUGS (6)
  1. XOLAIR [Suspect]
     Active Substance: OMALIZUMAB
     Indication: IDIOPATHIC URTICARIA
     Route: 058
     Dates: start: 20200207
  2. EFFEXOR [Concomitant]
     Active Substance: VENLAFAXINE HYDROCHLORIDE
     Route: 048
     Dates: start: 20200204, end: 20200923
  3. IRON [Concomitant]
     Active Substance: IRON
     Route: 048
     Dates: start: 20200923
  4. FEROSUL [Concomitant]
     Active Substance: FERROUS SULFATE
     Route: 048
     Dates: start: 20200923
  5. GABAPENTIN. [Concomitant]
     Active Substance: GABAPENTIN
     Route: 048
     Dates: start: 20200204
  6. NEXIUM [Concomitant]
     Active Substance: ESOMEPRAZOLE MAGNESIUM
     Route: 048
     Dates: start: 20200204

REACTIONS (1)
  - Blood iron decreased [Recovering/Resolving]
